FAERS Safety Report 4457298-3 (Version None)
Quarter: 2004Q3

REPORT INFORMATION
  Report Type: 
  Country: None (occurrence: None)
  Receive Date: 20040922
  Receipt Date: 20040908
  Transmission Date: 20050211
  Serious: Yes (Hospitalization, Other)
  Sender: FDA-Public Use
  Company Number: USA040874654

PATIENT

DRUGS (1)
  1. STRATTERA [Suspect]

REACTIONS (2)
  - TACHYCARDIA [None]
  - THYROIDITIS [None]
